FAERS Safety Report 20114176 (Version 1)
Quarter: 2021Q4

REPORT INFORMATION
  Report Type: Spontaneous
  Country: AR (occurrence: AR)
  Receive Date: 20211125
  Receipt Date: 20211125
  Transmission Date: 20220303
  Serious: Yes (Other)
  Sender: FDA-Public Use
  Company Number: AR-PFIZER INC-202101595850

PATIENT
  Age: 40 Year
  Sex: Male

DRUGS (1)
  1. SUTENT [Suspect]
     Active Substance: SUNITINIB MALATE
     Indication: Metastatic renal cell carcinoma
     Dosage: 50 MG, CYCLIC (EVERY 45 DAYS, SCHEME 4/2 REST)
     Dates: start: 20200108

REACTIONS (1)
  - Pain [Unknown]

NARRATIVE: CASE EVENT DATE: 20210901
